FAERS Safety Report 4407162-0 (Version None)
Quarter: 2004Q3

REPORT INFORMATION
  Report Type: 
  Country: None (occurrence: None)
  Receive Date: 20040723
  Receipt Date: 20040723
  Transmission Date: 20050211
  Serious: Yes (Other)
  Sender: FDA-Public Use
  Company Number: None

PATIENT
  Age: 78 Year
  Sex: Male
  Weight: 129.9 kg

DRUGS (7)
  1. LISINOPRIL [Suspect]
  2. GLYBURIDE [Concomitant]
  3. MIRTAZAPINE [Concomitant]
  4. ATENOLOL [Concomitant]
  5. FUROSEMIDE [Concomitant]
  6. TRAMADOL HCL [Concomitant]
  7. SIMVASTATIN [Concomitant]

REACTIONS (1)
  - COUGH [None]
